FAERS Safety Report 21095168 (Version 1)
Quarter: 2022Q3

REPORT INFORMATION
  Report Type: Spontaneous
  Country: US (occurrence: None)
  Receive Date: 20220716
  Receipt Date: 20220716
  Transmission Date: 20221027
  Serious: Yes (Disabling)
  Sender: FDA-Public Use
  Company Number: None

PATIENT
  Age: 61 Year
  Sex: Male
  Weight: 93.15 kg

DRUGS (1)
  1. FARXIGA [Suspect]
     Active Substance: DAPAGLIFLOZIN PROPANEDIOL
     Indication: Cardiac failure
     Dosage: FREQUENCY : DAILY;?
     Route: 048
     Dates: start: 20220601

REACTIONS (5)
  - Peripheral ischaemia [None]
  - Skin ulcer [None]
  - Arteriosclerosis [None]
  - Gangrene [None]
  - Leg amputation [None]

NARRATIVE: CASE EVENT DATE: 20220711
